FAERS Safety Report 5051709-0 (Version None)
Quarter: 2006Q3

REPORT INFORMATION
  Report Type: 
  Country: None (occurrence: None)
  Receive Date: 20060711
  Receipt Date: 20060616
  Transmission Date: 20061208
  Serious: Yes (Hospitalization)
  Sender: FDA-Public Use
  Company Number: US200606004144

PATIENT
  Sex: Female

DRUGS (2)
  1. FORTEO [Suspect]
     Indication: OSTEOPOROSIS
     Dates: start: 20060101
  2. FORTEO [Concomitant]

REACTIONS (5)
  - MALAISE [None]
  - PAIN [None]
  - SPINAL FRACTURE [None]
  - STOMACH DISCOMFORT [None]
  - STRESS FRACTURE [None]
